FAERS Safety Report 4464847-8 (Version None)
Quarter: 2004Q4

REPORT INFORMATION
  Report Type: 
  Country: None (occurrence: None)
  Receive Date: 20041004
  Receipt Date: 20031111
  Transmission Date: 20050328
  Serious: No
  Sender: FDA-Public Use
  Company Number: 354407

PATIENT

DRUGS (3)
  1. COREG [Suspect]
     Indication: HYPERTENSION
     Route: 048
  2. ADRIAMYCIN PFS [Concomitant]
  3. DIURETIC [Concomitant]

REACTIONS (1)
  - DYSURIA [None]
